FAERS Safety Report 6450394-0 (Version None)
Quarter: 2009Q4

REPORT INFORMATION
  Report Type: 
  Country: None (occurrence: None)
  Receive Date: 20091123
  Receipt Date: 20091118
  Transmission Date: 20100525
  Serious: Yes (Hospitalization)
  Sender: FDA-Public Use
  Company Number: US-BRISTOL-MYERS SQUIBB COMPANY-14863070

PATIENT
  Age: 32 Year
  Sex: Female
  Weight: 76 kg

DRUGS (2)
  1. CISPLATIN [Suspect]
     Indication: CERVIX CARCINOMA RECURRENT
     Dosage: RECENT INF:28SEP09(CYC 5)
     Route: 042
     Dates: start: 20090615
  2. ALIMTA [Suspect]
     Indication: CERVIX CARCINOMA RECURRENT
     Dosage: RECENT INF:28SEP09(CYC 5)
     Route: 042
     Dates: start: 20090615

REACTIONS (6)
  - HAEMOGLOBIN DECREASED [None]
  - INFECTION [None]
  - PLATELET COUNT DECREASED [None]
  - VAGINAL HAEMORRHAGE [None]
  - VISION BLURRED [None]
  - WHITE BLOOD CELL COUNT DECREASED [None]
